FAERS Safety Report 7963569-6 (Version None)
Quarter: 2011Q4

REPORT INFORMATION
  Report Type: 
  Country: None (occurrence: None)
  Receive Date: 20111208
  Receipt Date: 20111106
  Transmission Date: 20120403
  Serious: No
  Sender: FDA-Public Use
  Company Number: US-BAYER-2011-110833

PATIENT
  Age: 76 Year
  Sex: Female
  Weight: 71 kg

DRUGS (2)
  1. ALEVE (CAPLET) [Suspect]
     Dosage: 2 TABS QD
     Route: 048
  2. MIRAPEX [Concomitant]

REACTIONS (3)
  - BACK DISORDER [None]
  - ANALGESIC THERAPY [None]
  - RESTLESS LEGS SYNDROME [None]
